FAERS Safety Report 6021095-8 (Version None)
Quarter: 2008Q4

REPORT INFORMATION
  Report Type: 
  Country: None (occurrence: None)
  Receive Date: 20081229
  Receipt Date: 20081217
  Transmission Date: 20090506
  Serious: Yes (Death, Hospitalization)
  Sender: FDA-Public Use
  Company Number: BR-PFIZER INC-2008158196

PATIENT

DRUGS (2)
  1. CELEBRA [Suspect]
     Indication: ARTHRITIS
     Route: 048
  2. DRUG, UNSPECIFIED [Concomitant]

REACTIONS (1)
  - STEVENS-JOHNSON SYNDROME [None]
